FAERS Safety Report 24258066 (Version 1)
Quarter: 2024Q3

REPORT INFORMATION
  Report Type: Spontaneous
  Country: IT (occurrence: IT)
  Receive Date: 20240828
  Receipt Date: 20240828
  Transmission Date: 20241016
  Serious: Yes (Hospitalization, Other)
  Sender: AMGEN
  Company Number: IT-AMGEN-ITASP2024167806

PATIENT

DRUGS (1)
  1. ADALIMUMAB [Suspect]
     Active Substance: ADALIMUMAB
     Indication: Colitis ulcerative
     Dosage: UNK
     Route: 065

REACTIONS (12)
  - Unevaluable event [Unknown]
  - Embolism [Unknown]
  - Sepsis [Unknown]
  - Postoperative wound infection [Unknown]
  - Impaired healing [Unknown]
  - Intestinal anastomosis complication [Unknown]
  - Postoperative abscess [Unknown]
  - Pneumonia [Unknown]
  - Bacteraemia [Unknown]
  - COVID-19 [Unknown]
  - Infection [Unknown]
  - Urinary tract infection [Unknown]
